FAERS Safety Report 10146184 (Version 1)
Quarter: 2014Q2

REPORT INFORMATION
  Report Type: Spontaneous
  Country: US (occurrence: None)
  Receive Date: 20140430
  Receipt Date: 20140430
  Transmission Date: 20141212
  Serious: Yes (Disabling)
  Sender: FDA-Public Use
  Company Number: None

PATIENT
  Age: 60 Year
  Sex: Female
  Weight: 61 kg

DRUGS (9)
  1. RIVAROXABAN [Suspect]
     Indication: ATRIAL FIBRILLATION
     Route: 048
     Dates: start: 20140308, end: 20140322
  2. LYRICA [Concomitant]
  3. JANUVIA [Concomitant]
  4. LANTUS [Concomitant]
  5. SOTALOL [Concomitant]
  6. VERAPAMIL [Concomitant]
  7. SINGULAIR [Concomitant]
  8. AMBIEN [Concomitant]
  9. HUMALOG [Concomitant]

REACTIONS (7)
  - Nausea [None]
  - Vomiting [None]
  - Dizziness [None]
  - Cerebral haemorrhage [None]
  - Brain oedema [None]
  - Blood pressure increased [None]
  - Blood glucose increased [None]
